FAERS Safety Report 7493002-2 (Version None)
Quarter: 2011Q2

REPORT INFORMATION
  Report Type: 
  Country: None (occurrence: None)
  Receive Date: 20110520
  Receipt Date: 20110516
  Transmission Date: 20111010
  Serious: No
  Sender: FDA-Public Use
  Company Number: US-TEVA-282333USA

PATIENT
  Sex: Female
  Weight: 62.652 kg

DRUGS (3)
  1. PLAN B ONE-STEP [Suspect]
     Indication: POST COITAL CONTRACEPTION
     Dosage: 1.5 MILLIGRAM;
     Route: 048
     Dates: start: 20110513, end: 20110513
  2. DRAMAMINE [Concomitant]
     Indication: NAUSEA
     Dates: start: 20110513, end: 20110513
  3. MACROBID [Concomitant]
     Indication: URINARY TRACT INFECTION
     Dates: start: 20110502

REACTIONS (1)
  - FATIGUE [None]
